FAERS Safety Report 7234063-5 (Version None)
Quarter: 2011Q1

REPORT INFORMATION
  Report Type: 
  Country: None (occurrence: None)
  Receive Date: 20110119
  Receipt Date: 20110104
  Transmission Date: 20110831
  Serious: Yes (Other)
  Sender: FDA-Public Use
  Company Number: US-MDL-2011ML000006

PATIENT

DRUGS (1)
  1. BUPRENORPHINE HCL [Suspect]
     Indication: PRODUCT USED FOR UNKNOWN INDICATION
     Route: 065

REACTIONS (4)
  - SUICIDAL IDEATION [None]
  - ANXIETY [None]
  - PAIN [None]
  - FEELING ABNORMAL [None]
